FAERS Safety Report 6770375-7 (Version None)
Quarter: 2010Q2

REPORT INFORMATION
  Report Type: 
  Country: None (occurrence: None)
  Receive Date: 20100615
  Receipt Date: 20100609
  Transmission Date: 20101027
  Serious: Yes (Other)
  Sender: FDA-Public Use
  Company Number: US-PFIZER INC-2010072144

PATIENT
  Sex: Female

DRUGS (5)
  1. GLUCOTROL [Suspect]
     Dosage: UNK
  2. LANTUS [Suspect]
     Indication: DIABETES MELLITUS
     Dosage: 35 UNITS ONCE A DAY
  3. LANTUS [Suspect]
     Dosage: 45 UNITS, 1X/DAY
  4. LANTUS [Suspect]
     Dosage: 50 UNITS, 1X/DAY
  5. INSULIN GLULISINE [Suspect]

REACTIONS (3)
  - ABDOMINAL PAIN [None]
  - BLOOD GLUCOSE INCREASED [None]
  - NAUSEA [None]
